FAERS Safety Report 5958244-3 (Version None)
Quarter: 2008Q4

REPORT INFORMATION
  Report Type: 
  Country: None (occurrence: None)
  Receive Date: 20081119
  Receipt Date: 20081105
  Transmission Date: 20090506
  Serious: Yes (Hospitalization)
  Sender: FDA-Public Use
  Company Number: GR-BIOGENIDEC-2008BI029734

PATIENT
  Age: 43 Year
  Sex: Female
  Weight: 103 kg

DRUGS (1)
  1. TYSABRI [Suspect]
     Indication: MULTIPLE SCLEROSIS
     Route: 042
     Dates: start: 20080507, end: 20080920

REACTIONS (1)
  - ACUTE PROMYELOCYTIC LEUKAEMIA [None]
